FAERS Safety Report 9656772 (Version 4)
Quarter: 2013Q4

REPORT INFORMATION
  Report Type: Spontaneous
  Country: JP (occurrence: JP)
  Receive Date: 20131030
  Receipt Date: 20131113
  Transmission Date: 20140711
  Serious: Yes (Other)
  Sender: FDA-Public Use
  Company Number: JP-PFIZER INC-2013289431

PATIENT
  Age: 59 Year
  Sex: Male

DRUGS (3)
  1. INLYTA [Suspect]
     Indication: METASTATIC RENAL CELL CARCINOMA
     Dosage: 5 MG, 2X/DAY
     Route: 048
     Dates: start: 20131005, end: 20131027
  2. ZOMETA [Concomitant]
     Indication: METASTASIS
     Dosage: UNK
  3. FEMARA [Concomitant]
     Dosage: UNK

REACTIONS (21)
  - Scrotal infection [Recovered/Resolved]
  - Aspartate aminotransferase increased [Not Recovered/Not Resolved]
  - Hypertension [Recovered/Resolved]
  - Hypothyroidism [Not Recovered/Not Resolved]
  - Dysuria [Recovered/Resolved]
  - Cheilitis [Not Recovered/Not Resolved]
  - Dysphonia [Unknown]
  - Dermatitis [Recovered/Resolved]
  - Oesophagitis [Not Recovered/Not Resolved]
  - Epistaxis [Unknown]
  - Pain of skin [Unknown]
  - Eye pain [Unknown]
  - Diarrhoea [Recovered/Resolved]
  - Malaise [Not Recovered/Not Resolved]
  - Proteinuria [Unknown]
  - Decreased appetite [Recovering/Resolving]
  - Blood creatinine increased [Recovering/Resolving]
  - Night sweats [Unknown]
  - Feeling hot [Unknown]
  - Disease progression [Unknown]
  - Metastatic renal cell carcinoma [Unknown]
